FAERS Safety Report 8471043-6 (Version None)
Quarter: 2012Q2

REPORT INFORMATION
  Report Type: 
  Country: None (occurrence: None)
  Receive Date: 20120627
  Receipt Date: 20120618
  Transmission Date: 20120825
  Serious: Yes (Other)
  Sender: FDA-Public Use
  Company Number: JP-ROXANE LABORATORIES, INC.-2012-RO-01437RO

PATIENT
  Age: 52 Year
  Sex: Male

DRUGS (6)
  1. CEFTRIAXONE [Suspect]
     Indication: MENINGITIS PNEUMOCOCCAL
     Dosage: 4 G
  2. MEROPENEM [Suspect]
     Indication: MENINGITIS PNEUMOCOCCAL
     Dosage: 6 G
  3. LINEZOLID [Suspect]
     Indication: MENINGITIS PNEUMOCOCCAL
     Dosage: 1200 MG
     Route: 048
  4. DEXAMETHASONE [Suspect]
     Indication: MENINGITIS PNEUMOCOCCAL
     Dosage: 16 MG
  5. CLOPIDOGREL [Suspect]
     Indication: ISCHAEMIC STROKE
     Route: 048
  6. OZAGREL [Suspect]
     Indication: ISCHAEMIC STROKE
     Route: 042

REACTIONS (5)
  - HEMIANOPIA [None]
  - ABULIA [None]
  - VASCULITIS CEREBRAL [None]
  - ISCHAEMIC STROKE [None]
  - VASOSPASM [None]
